FAERS Safety Report 5727743-1 (Version None)
Quarter: 2008Q2

REPORT INFORMATION
  Report Type: 
  Country: None (occurrence: None)
  Receive Date: 20080505
  Receipt Date: 20080430
  Transmission Date: 20081010
  Serious: Yes (Other)
  Sender: FDA-Public Use
  Company Number: US-ASTRAZENECA-2008UW08766

PATIENT
  Sex: Female

DRUGS (1)
  1. CRESTOR [Suspect]
     Indication: BLOOD CHOLESTEROL INCREASED
     Route: 048
     Dates: start: 20060101, end: 20080101

REACTIONS (6)
  - FATIGUE [None]
  - GAIT DISTURBANCE [None]
  - LIMB DISCOMFORT [None]
  - MOBILITY DECREASED [None]
  - MOVEMENT DISORDER [None]
  - PAIN [None]
